FAERS Safety Report 13013462 (Version 1)
Quarter: 2016Q4

REPORT INFORMATION
  Report Type: Report from Study
  Country: DE (occurrence: DE)
  Receive Date: 20161209
  Receipt Date: 20161209
  Transmission Date: 20170207
  Serious: Yes (Hospitalization)
  Sender: FDA-Public Use
  Company Number: DE-BIOGEN-2016BI00327184

PATIENT
  Sex: Female

DRUGS (2)
  1. PLEGRIDY [Suspect]
     Active Substance: PEGINTERFERON BETA-1A
     Indication: MULTIPLE SCLEROSIS
     Route: 058
     Dates: start: 20160119
  2. APONAL [Concomitant]
     Active Substance: DOXEPIN HYDROCHLORIDE
     Indication: MENTAL DISORDER
     Route: 065
     Dates: start: 2012

REACTIONS (5)
  - Enteritis [Recovered/Resolved]
  - Circulatory collapse [Recovered/Resolved]
  - Muscular weakness [Recovered/Resolved]
  - Gastritis [Recovered/Resolved]
  - Mental disorder [Recovered/Resolved]

NARRATIVE: CASE EVENT DATE: 2016
